FAERS Safety Report 8292737-1 (Version None)
Quarter: 2012Q2

REPORT INFORMATION
  Report Type: 
  Country: None (occurrence: None)
  Receive Date: 20120417
  Receipt Date: 20111110
  Transmission Date: 20120825
  Serious: No
  Sender: FDA-Public Use
  Company Number: US-ASTRAZENECA-2010SE57600

PATIENT
  Age: 69 Year
  Sex: Female

DRUGS (4)
  1. ZANTAC [Concomitant]
  2. MUCINEX [Concomitant]
  3. NEXIUM [Suspect]
     Route: 048
  4. PROMETHAZINE [Concomitant]

REACTIONS (9)
  - PNEUMONIA [None]
  - GASTROOESOPHAGEAL REFLUX DISEASE [None]
  - MALAISE [None]
  - HYPERTENSION [None]
  - NASOPHARYNGITIS [None]
  - SINUS CONGESTION [None]
  - DRUG DOSE OMISSION [None]
  - NAUSEA [None]
  - MIDDLE EAR EFFUSION [None]
